FAERS Safety Report 8555884 (Version 2)
Quarter: 2014Q4

REPORT INFORMATION
  Report Type: Report from Study
  Country: BR (occurrence: BR)
  Receive Date: 20120510
  Receipt Date: 20141208
  Transmission Date: 20150529
  Serious: Yes (Other)
  Sender: FDA-Public Use
  Company Number: BR-ROCHE-1063828

PATIENT
  Age: 58 Year
  Sex: Female
  Weight: 91 kg

DRUGS (12)
  1. HYDROXYCHLOROQUINE [Concomitant]
     Active Substance: HYDROXYCHLOROQUINE
  2. PREGABALIN. [Concomitant]
     Active Substance: PREGABALIN
  3. LOSARTAN [Concomitant]
     Active Substance: LOSARTAN
  4. RITUXIMAB [Suspect]
     Active Substance: RITUXIMAB
     Route: 042
     Dates: start: 20130807, end: 20130821
  5. RITUXIMAB [Suspect]
     Active Substance: RITUXIMAB
     Indication: RHEUMATOID ARTHRITIS
     Route: 042
     Dates: start: 20110923, end: 20111007
  6. LOSARTAN POTASSIUM. [Concomitant]
     Active Substance: LOSARTAN POTASSIUM
     Indication: PRODUCT USED FOR UNKNOWN INDICATION
  7. RITUXIMAB [Suspect]
     Active Substance: RITUXIMAB
     Route: 042
     Dates: start: 20120601, end: 20120615
  8. EXODUS [Concomitant]
     Active Substance: ESCITALOPRAM OXALATE
  9. RITUXIMAB [Suspect]
     Active Substance: RITUXIMAB
     Route: 042
     Dates: start: 20121218, end: 20130108
  10. RITUXIMAB [Suspect]
     Active Substance: RITUXIMAB
     Route: 042
     Dates: start: 20140505, end: 20140519
  11. PIROXICAM. [Concomitant]
     Active Substance: PIROXICAM
  12. CYCLOBENZAPRINE [Concomitant]
     Active Substance: CYCLOBENZAPRINE

REACTIONS (2)
  - Arthropathy [Unknown]
  - Drug ineffective [Unknown]

NARRATIVE: CASE EVENT DATE: 20120411
